FAERS Safety Report 8476535-1 (Version None)
Quarter: 2012Q2

REPORT INFORMATION
  Report Type: 
  Country: None (occurrence: None)
  Receive Date: 20120628
  Receipt Date: 20120619
  Transmission Date: 20120825
  Serious: Yes (Other)
  Sender: FDA-Public Use
  Company Number: US-JNJFOC-20120504407

PATIENT
  Sex: Female
  Weight: 53.07 kg

DRUGS (3)
  1. REMICADE [Suspect]
     Route: 042
     Dates: start: 20101220
  2. REMICADE [Suspect]
     Dosage: START DATE AND STOP DATE: 27 OR 28-APR-2012
     Route: 042
     Dates: start: 20120401, end: 20120401
  3. REMICADE [Suspect]
     Indication: CROHN'S DISEASE
     Route: 042
     Dates: start: 20120409, end: 20120409

REACTIONS (7)
  - DYSPNOEA [None]
  - INFUSION RELATED REACTION [None]
  - ERYTHEMA [None]
  - PALPITATIONS [None]
  - OCULAR HYPERAEMIA [None]
  - FEELING HOT [None]
  - INTESTINAL RESECTION [None]
